FAERS Safety Report 17753004 (Version 1)
Quarter: 2020Q2

REPORT INFORMATION
  Report Type: Report from Study
  Country: US (occurrence: US)
  Receive Date: 20200506
  Receipt Date: 20200506
  Transmission Date: 20200714
  Serious: Yes (Hospitalization)
  Sender: FDA-Public Use
  Company Number: US-EISAI MEDICAL RESEARCH-EC-2020-073717

PATIENT
  Age: 64 Year
  Sex: Female
  Weight: 73 kg

DRUGS (2)
  1. VITAMIN D3 [Concomitant]
     Active Substance: CHOLECALCIFEROL
  2. LENVIMA [Suspect]
     Active Substance: LENVATINIB
     Indication: ENDOMETRIAL CANCER
     Route: 048
     Dates: start: 20191030

REACTIONS (9)
  - Vomiting [Unknown]
  - Headache [Unknown]
  - Dizziness [Unknown]
  - Nasal disorder [Unknown]
  - Feeling abnormal [Unknown]
  - Fatigue [Unknown]
  - Gait inability [Unknown]
  - Stomatitis [Unknown]
  - Abdominal pain [Unknown]
